FAERS Safety Report 21918525 (Version 1)
Quarter: 2023Q1

REPORT INFORMATION
  Report Type: Spontaneous
  Country: MX (occurrence: MX)
  Receive Date: 20230127
  Receipt Date: 20230127
  Transmission Date: 20230417
  Serious: Yes (Other)
  Sender: FDA-Public Use
  Company Number: MX-MACLEODS PHARMACEUTICALS US LTD-MAC2023039441

PATIENT

DRUGS (8)
  1. ESCITALOPRAM [Suspect]
     Active Substance: ESCITALOPRAM OXALATE
     Indication: Major depression
     Dosage: 10 MILLIGRAM, QD
     Route: 065
  2. CALCITRIOL [Concomitant]
     Active Substance: CALCITRIOL
     Indication: Hypothyroidism
     Dosage: 0.25 MICROGRAM, QD
     Route: 065
  3. CALCITRIOL [Concomitant]
     Active Substance: CALCITRIOL
     Indication: Hypoparathyroidism
  4. Colecalciferol/ Calcium [Concomitant]
     Indication: Hypothyroidism
     Dosage: 1 DOSAGE FORM, QD, 400 [IU]/ 600 MG
     Route: 065
  5. Colecalciferol/ Calcium [Concomitant]
     Indication: Hypoparathyroidism
  6. LEVOTHYROXINE [Concomitant]
     Active Substance: LEVOTHYROXINE
     Indication: Hypothyroidism
     Dosage: 10 MICROGRAM, QD
     Route: 065
  7. LEVOTHYROXINE [Concomitant]
     Active Substance: LEVOTHYROXINE
     Indication: Hypoparathyroidism
  8. CANDESARTAN [Concomitant]
     Active Substance: CANDESARTAN
     Indication: Hypertension
     Dosage: UNK
     Route: 065

REACTIONS (3)
  - Hypocalcaemia [Unknown]
  - Hyponatraemia [Recovering/Resolving]
  - Inappropriate antidiuretic hormone secretion [Recovering/Resolving]
